FAERS Safety Report 12363480 (Version 1)
Quarter: 2016Q2

REPORT INFORMATION
  Report Type: Spontaneous
  Country: US (occurrence: None)
  Receive Date: 20160512
  Receipt Date: 20160512
  Transmission Date: 20160815
  Serious: No
  Sender: FDA-Public Use
  Company Number: None

PATIENT
  Age: 32 Year
  Sex: Female

DRUGS (1)
  1. LUPRON DEPOT [Suspect]
     Active Substance: LEUPROLIDE ACETATE
     Dosage: 3.75 Q 4 WK IM
     Route: 030

REACTIONS (2)
  - Vaginal haemorrhage [None]
  - Hot flush [None]

NARRATIVE: CASE EVENT DATE: 20160401
